FAERS Safety Report 20824413 (Version 1)
Quarter: 2022Q2

REPORT INFORMATION
  Report Type: Spontaneous
  Country: DE (occurrence: DE)
  Receive Date: 20220513
  Receipt Date: 20220513
  Transmission Date: 20220721
  Serious: No
  Sender: FDA-Public Use
  Company Number: DE-ALKEM LABORATORIES LIMITED-DE-ALKEM-2022-02386

PATIENT
  Age: 58 Year
  Sex: Male

DRUGS (7)
  1. ATORVASTATIN CALCIUM [Suspect]
     Active Substance: ATORVASTATIN CALCIUM
     Indication: Product used for unknown indication
     Dosage: UNK
     Route: 065
  2. EZETIMIBE [Suspect]
     Active Substance: EZETIMIBE
     Indication: Product used for unknown indication
     Dosage: UNK
     Route: 065
  3. ROSUVASTATIN [Suspect]
     Active Substance: ROSUVASTATIN
     Indication: Product used for unknown indication
     Dosage: UNK
     Route: 065
  4. ALIROCUMAB [Suspect]
     Active Substance: ALIROCUMAB
     Indication: Product used for unknown indication
     Dosage: UNK
     Route: 065
  5. EVOLOCUMAB [Suspect]
     Active Substance: EVOLOCUMAB
     Indication: Product used for unknown indication
     Dosage: UNK
     Route: 065
  6. SIMVASTATIN [Suspect]
     Active Substance: SIMVASTATIN
     Indication: Product used for unknown indication
     Dosage: UNK
     Route: 065
  7. BEMPEDOIC ACID [Concomitant]
     Active Substance: BEMPEDOIC ACID
     Indication: Product used for unknown indication
     Dosage: UNK
     Route: 065

REACTIONS (1)
  - Drug intolerance [Unknown]
